FAERS Safety Report 8761873 (Version 5)
Quarter: 2013Q1

REPORT INFORMATION
  Report Type: Report from Study
  Country: JP (occurrence: JP)
  Receive Date: 20120830
  Receipt Date: 20130218
  Transmission Date: 20140127
  Serious: Yes (Hospitalization, Other)
  Sender: FDA-Public Use
  Company Number: JP-ABBOTT-12P-087-0971254-00

PATIENT
  Age: 75 Year
  Sex: Male
  Weight: 66 kg

DRUGS (16)
  1. HUMIRA [Suspect]
     Indication: ANKYLOSING SPONDYLITIS
     Route: 058
     Dates: start: 20120227, end: 20120312
  2. HUMIRA [Suspect]
     Dates: start: 20120326, end: 20120409
  3. HUMIRA [Suspect]
     Dates: start: 20120517, end: 20120730
  4. ISONIAZID [Suspect]
     Indication: ANTIBIOTIC PROPHYLAXIS
     Route: 048
     Dates: start: 20120210, end: 20120409
  5. ISONIAZID [Suspect]
     Dates: start: 20120419, end: 20120425
  6. ISONIAZID [Suspect]
     Dates: start: 20120426, end: 20120502
  7. ISONIAZID [Suspect]
     Dates: start: 20120503, end: 20120509
  8. ISONIAZID [Suspect]
     Dates: start: 20120509, end: 20120809
  9. KETOPROFEN [Concomitant]
     Indication: ANKYLOSING SPONDYLITIS
     Route: 062
  10. PYRIDOXAL PHOSPHATE HYDRATE [Concomitant]
     Indication: PROPHYLAXIS
     Dates: start: 20120227, end: 20120809
  11. PYRIDOXAL PHOSPHATE HYDRATE [Concomitant]
     Indication: ADVERSE DRUG REACTION
  12. AMLODIPINE BESILATE [Concomitant]
     Indication: PRODUCT USED FOR UNKNOWN INDICATION
     Dates: start: 20120227
  13. FAMOTIDINE [Concomitant]
     Indication: PRODUCT USED FOR UNKNOWN INDICATION
     Route: 048
     Dates: start: 20120227
  14. REBAMIPIDE [Concomitant]
     Indication: PRODUCT USED FOR UNKNOWN INDICATION
     Route: 048
     Dates: start: 20120227
  15. VALSARTAN [Concomitant]
     Indication: PRODUCT USED FOR UNKNOWN INDICATION
     Route: 048
     Dates: start: 20120227
  16. BROTIZOLAM [Concomitant]
     Indication: PRODUCT USED FOR UNKNOWN INDICATION
     Route: 048
     Dates: start: 20120227

REACTIONS (2)
  - Incision site oedema [Unknown]
  - Dermatofibrosarcoma protuberans [Recovered/Resolved]
